FAERS Safety Report 9166450 (Version 1)
Quarter: 2013Q1

REPORT INFORMATION
  Report Type: Report from Study
  Country: BR (occurrence: BR)
  Receive Date: 20130315
  Receipt Date: 20130315
  Transmission Date: 20140127
  Serious: Yes (Congenital Anomaly)
  Sender: FDA-Public Use
  Company Number: PHHO2013BR003815

PATIENT
  Age: 0 Year
  Sex: Female

DRUGS (4)
  1. AMN107 [Suspect]
     Indication: CHRONIC MYELOID LEUKAEMIA
     Dosage: MATERNAL DOSE: 400 MG
     Route: 064
  2. NAUSEDRON [Concomitant]
     Indication: NAUSEA
     Dosage: MATERNAL DOSE: 8 MG
     Route: 064
  3. CERAZETTE [Concomitant]
     Indication: CONTRACEPTION
     Dosage: MATERNAL DOSE: A PILL
     Route: 064
  4. DORFLEX [Concomitant]
     Indication: HEADACHE
     Dosage: MATERNAL DOSE: A TABLET
     Route: 064

REACTIONS (3)
  - Encephalocele [Recovered/Resolved]
  - Cerebellar hypoplasia [Unknown]
  - Exposure during pregnancy [Unknown]
